FAERS Safety Report 9894702 (Version 1)
Quarter: 2014Q1

REPORT INFORMATION
  Report Type: Spontaneous
  Country: US (occurrence: US)
  Receive Date: 20140213
  Receipt Date: 20140213
  Transmission Date: 20141002
  Serious: No
  Sender: FDA-Public Use
  Company Number: US-GILEAD-2013-0079045

PATIENT
  Sex: Female

DRUGS (1)
  1. RANEXA [Suspect]
     Indication: ANGINA PECTORIS
     Dosage: 2 500 MG PILLS, QD
     Route: 048

REACTIONS (1)
  - Medication error [Unknown]
